FAERS Safety Report 22380578 (Version 3)
Quarter: 2023Q2

REPORT INFORMATION
  Report Type: Spontaneous
  Country: FI (occurrence: FI)
  Receive Date: 20230529
  Receipt Date: 20230622
  Transmission Date: 20230721
  Serious: No
  Sender: FDA-Public Use
  Company Number: FI-JNJFOC-20230521305

PATIENT
  Age: 58 Year
  Sex: Male

DRUGS (1)
  1. SIMPONI [Suspect]
     Active Substance: GOLIMUMAB
     Indication: Ankylosing spondylitis
     Dosage: 100.00 MG/ML
     Route: 058

REACTIONS (4)
  - Device failure [Unknown]
  - Drug dose omission by device [Unknown]
  - Off label use [Unknown]
  - Needle issue [Unknown]
